FAERS Safety Report 4978119-6 (Version None)
Quarter: 2006Q2

REPORT INFORMATION
  Report Type: 
  Country: None (occurrence: None)
  Receive Date: 20060420
  Receipt Date: 20060417
  Transmission Date: 20061013
  Serious: Yes (Death)
  Sender: FDA-Public Use
  Company Number: DE-AVENTIS-200614115GDDC

PATIENT
  Age: 30 Year
  Sex: Male

DRUGS (11)
  1. HYDROCORTISONE [Suspect]
     Indication: COLITIS ULCERATIVE
  2. PREDNISOLONE [Suspect]
     Indication: COLITIS ULCERATIVE
  3. PREDNISOLONE [Suspect]
  4. PREDNISOLONE [Suspect]
  5. PREDNISOLONE [Suspect]
  6. PREDNISOLONE [Suspect]
     Indication: DIARRHOEA
  7. PREDNISOLONE [Suspect]
  8. PREDNISOLONE [Suspect]
  9. PREDNISOLONE [Suspect]
  10. MESALAZINE [Suspect]
     Indication: COLITIS ULCERATIVE
  11. QUINOLONE ANTIBACTERIALS [Concomitant]

REACTIONS (16)
  - ACUTE RESPIRATORY DISTRESS SYNDROME [None]
  - BRAIN OEDEMA [None]
  - CARDIAC ARREST [None]
  - CLOSTRIDIAL INFECTION [None]
  - DISSEMINATED INTRAVASCULAR COAGULATION [None]
  - GAS GANGRENE [None]
  - HAEMODIALYSIS [None]
  - HAEMODYNAMIC INSTABILITY [None]
  - HAEMORRHAGE [None]
  - HYPERKALAEMIA [None]
  - ISCHAEMIC HEPATITIS [None]
  - LACTIC ACIDOSIS [None]
  - MULTI-ORGAN FAILURE [None]
  - MYOCARDITIS [None]
  - RHABDOMYOLYSIS [None]
  - SEPTIC SHOCK [None]
